FAERS Safety Report 9831163 (Version 2)
Quarter: 2014Q1

REPORT INFORMATION
  Report Type: Spontaneous
  Country: US (occurrence: US)
  Receive Date: 20140121
  Receipt Date: 20140204
  Transmission Date: 20141002
  Serious: Yes (Life-Threatening, Hospitalization)
  Sender: FDA-Public Use
  Company Number: US-ROCHE-1333756

PATIENT
  Sex: Female

DRUGS (3)
  1. ROCEPHIN [Suspect]
     Indication: INFECTION
     Route: 065
  2. CIPRO [Concomitant]
     Indication: INFECTION
     Route: 065
  3. VANCOMYCIN [Concomitant]
     Indication: INFECTION
     Route: 042

REACTIONS (7)
  - Cardiac arrest [Unknown]
  - Clostridium difficile infection [Unknown]
  - Weight decreased [Unknown]
  - Muscle atrophy [Unknown]
  - Dry skin [Unknown]
  - Bipolar disorder [Unknown]
  - Dysgeusia [Unknown]
